FAERS Safety Report 10667728 (Version 3)
Quarter: 2015Q1

REPORT INFORMATION
  Report Type: Report from Study
  Country: US (occurrence: US)
  Receive Date: 20141222
  Receipt Date: 20150115
  Transmission Date: 20150720
  Serious: Yes (Death, Hospitalization)
  Sender: FDA-Public Use
  Company Number: US-ACTELION-A-US2014-109848

PATIENT
  Age: 75 Year
  Sex: Female

DRUGS (2)
  1. TRACLEER [Suspect]
     Active Substance: BOSENTAN\BOSENTAN MONOHYDRATE
     Indication: PULMONARY ARTERIAL HYPERTENSION
     Dosage: UNK
     Route: 048
     Dates: end: 20141110
  2. OXYGEN. [Concomitant]
     Active Substance: OXYGEN
     Dosage: 3 LITERS, CONTINOUSLY

REACTIONS (7)
  - Pulmonary arterial hypertension [Fatal]
  - Pneumonia [Fatal]
  - Scleroderma [Fatal]
  - Disease complication [Fatal]
  - Hypoxia [Fatal]
  - Non-small cell lung cancer recurrent [Fatal]
  - Dyspnoea [Fatal]

NARRATIVE: CASE EVENT DATE: 201410
